FAERS Safety Report 15245957 (Version 1)
Quarter: 2018Q3

REPORT INFORMATION
  Report Type: Spontaneous
  Country: CH (occurrence: CH)
  Receive Date: 20180806
  Receipt Date: 20180806
  Transmission Date: 20181010
  Serious: Yes (Other)
  Sender: FDA-Public Use
  Company Number: CH-PFIZER INC-2017533913

PATIENT
  Age: 37 Year
  Sex: Female

DRUGS (4)
  1. LYRICA [Suspect]
     Active Substance: PREGABALIN
     Indication: TENSION HEADACHE
     Dosage: BETWEEN 25 AND 50 MG (MAXIMUM TWICE DAILY IF NEEDED)
     Route: 048
     Dates: start: 20170614, end: 20170702
  2. UTROGESTAN [Concomitant]
     Active Substance: PROGESTERONE
     Dosage: 200 MG, ONCE DAILY FOR ONE MONTH
     Route: 067
     Dates: start: 2017, end: 2017
  3. GYNO?TARDYFERON [Concomitant]
     Dosage: UNK
  4. FOLIC ACID. [Concomitant]
     Active Substance: FOLIC ACID
     Dosage: 5 MG, ONCE DAILY

REACTIONS (2)
  - Pre-eclampsia [Unknown]
  - Product use in unapproved indication [Recovered/Resolved]

NARRATIVE: CASE EVENT DATE: 20170614
